FAERS Safety Report 17559934 (Version 1)
Quarter: 2020Q1

REPORT INFORMATION
  Report Type: Spontaneous
  Country: US (occurrence: US)
  Receive Date: 20200311
  Receipt Date: 20200311
  Transmission Date: 20200409
  Serious: Yes (Hospitalization)
  Sender: FDA-Public Use
  Company Number: None

PATIENT
  Age: 63 Year
  Sex: Male
  Weight: 67 kg

DRUGS (2)
  1. DAUNORUBICIN [Suspect]
     Active Substance: DAUNORUBICIN
     Dates: end: 20200116
  2. CYTARABINE. [Suspect]
     Active Substance: CYTARABINE
     Dates: end: 20200120

REACTIONS (9)
  - Cardiac valve vegetation [None]
  - Acute kidney injury [None]
  - Abdominal pain [None]
  - Chills [None]
  - Diarrhoea [None]
  - White blood cell count decreased [None]
  - Endocarditis [None]
  - Bacterial sepsis [None]
  - Febrile neutropenia [None]

NARRATIVE: CASE EVENT DATE: 20200126
